FAERS Safety Report 6334171-7 (Version None)
Quarter: 2009Q3

REPORT INFORMATION
  Report Type: 
  Country: None (occurrence: None)
  Receive Date: 20090829
  Receipt Date: 20090715
  Transmission Date: 20100115
  Serious: No
  Sender: FDA-Public Use
  Company Number: US-ABBOTT-09P-163-0585801-00

PATIENT
  Sex: Male
  Weight: 94.432 kg

DRUGS (3)
  1. SIMCOR [Suspect]
     Indication: BLOOD CHOLESTEROL INCREASED
     Dosage: EVERY NIGHT
     Dates: start: 20090708, end: 20090712
  2. SIMCOR [Suspect]
     Dosage: PT HAS BEEN CUTTING PILLS IN HALF
     Dates: start: 20090713, end: 20090714
  3. SIMCOR [Suspect]
     Dates: start: 20090715

REACTIONS (2)
  - PRURITUS [None]
  - WRONG TECHNIQUE IN DRUG USAGE PROCESS [None]
